FAERS Safety Report 18480093 (Version 1)
Quarter: 2020Q4

REPORT INFORMATION
  Report Type: Spontaneous
  Country: US (occurrence: US)
  Receive Date: 20201109
  Receipt Date: 20201109
  Transmission Date: 20210114
  Serious: No
  Sender: FDA-Public Use
  Company Number: None

PATIENT
  Sex: Male

DRUGS (1)
  1. AFINITOR [Suspect]
     Active Substance: EVEROLIMUS
     Indication: CARCINOID TUMOUR OF THE LIVER
     Route: 048
     Dates: start: 20200612

REACTIONS (5)
  - Stomatitis [None]
  - Blood cholesterol increased [None]
  - Rash [None]
  - Flatulence [None]
  - Drug ineffective [None]
